FAERS Safety Report 9582906 (Version 1)
Quarter: 2013Q4

REPORT INFORMATION
  Report Type: Spontaneous
  Country: US (occurrence: US)
  Receive Date: 20131002
  Receipt Date: 20131002
  Transmission Date: 20140711
  Serious: No
  Sender: FDA-Public Use
  Company Number: US-AMGEN-USASP2013043205

PATIENT
  Age: 64 Year
  Sex: Female

DRUGS (18)
  1. ENBREL [Suspect]
     Indication: PRODUCT USED FOR UNKNOWN INDICATION
     Dosage: 50 MG, TWICE WEEKLY FOR 3 MONTHS. TAPERED TO ONCE A WEEK
     Route: 058
  2. ATENOLOL [Concomitant]
     Dosage: 25 MG, UNK
  3. SIMVASTATIN [Concomitant]
     Dosage: 10 MG, UNK
  4. FOLIC ACID [Concomitant]
     Dosage: UNK
  5. WELCHOL [Concomitant]
     Dosage: 625 MG, UNK
  6. CYCLOBENZAPRINE [Concomitant]
     Dosage: 7.5 MG, UNK
  7. GLUMETZA [Concomitant]
     Dosage: 500 MG, UNK
  8. FLUOXETINE [Concomitant]
     Dosage: 10 MG, UNK
  9. ESTRADIOL [Concomitant]
     Dosage: 0.025 MG, UNK
  10. LEVOTHYROXIN [Concomitant]
     Dosage: 100 MUG, UNK
  11. BUSPIRONE [Concomitant]
     Dosage: 10 MG, UNK
  12. POTASSIUM [Concomitant]
     Dosage: 95 MG, UNK
  13. BENADRYL                           /00000402/ [Concomitant]
     Dosage: 25 MG, UNK
  14. LEVEMIR [Concomitant]
     Dosage: UNK
  15. RANITIDINE [Concomitant]
     Dosage: 75 MG, UNK
  16. ZOLPIDEM [Concomitant]
     Dosage: 5 MG, UNK
  17. DOXYCYCLA [Concomitant]
     Dosage: 50 MG, UNK
  18. FUROSEMIDE [Concomitant]
     Dosage: UNK

REACTIONS (1)
  - Fluid retention [Unknown]
